FAERS Safety Report 19891594 (Version 1)
Quarter: 2021Q3

REPORT INFORMATION
  Report Type: Spontaneous
  Country: TR (occurrence: TR)
  Receive Date: 20210928
  Receipt Date: 20210928
  Transmission Date: 20211014
  Serious: Yes (Life-Threatening, Hospitalization, Other)
  Sender: FDA-Public Use
  Company Number: TR-ABBVIE-21K-161-4094297-00

PATIENT
  Age: 41 Year
  Sex: Male

DRUGS (4)
  1. VALPROIC ACID. [Suspect]
     Active Substance: VALPROIC ACID
     Indication: SEIZURE PROPHYLAXIS
     Route: 065
  2. QUETIAPINE FUMARATE. [Interacting]
     Active Substance: QUETIAPINE FUMARATE
     Route: 065
  3. QUETIAPINE FUMARATE. [Interacting]
     Active Substance: QUETIAPINE FUMARATE
     Indication: SCHIZOPHRENIA
     Route: 065
  4. VALPROIC ACID. [Interacting]
     Active Substance: VALPROIC ACID
     Route: 065

REACTIONS (16)
  - Speech disorder [Recovering/Resolving]
  - Psychomotor retardation [Recovering/Resolving]
  - Lethargy [Recovering/Resolving]
  - Abnormal behaviour [Recovering/Resolving]
  - Stubbornness [Recovering/Resolving]
  - Food refusal [Recovering/Resolving]
  - Hyperammonaemic encephalopathy [Recovering/Resolving]
  - Partner stress [Recovering/Resolving]
  - Somnolence [Recovering/Resolving]
  - Drug interaction [Recovering/Resolving]
  - Impaired self-care [Recovering/Resolving]
  - Hallucinations, mixed [Recovering/Resolving]
  - Social (pragmatic) communication disorder [Recovering/Resolving]
  - Disturbance in attention [Recovering/Resolving]
  - Bradyphrenia [Recovering/Resolving]
  - Persecutory delusion [Recovering/Resolving]
